FAERS Safety Report 8073068-1 (Version None)
Quarter: 2012Q1

REPORT INFORMATION
  Report Type: 
  Country: None (occurrence: None)
  Receive Date: 20120120
  Receipt Date: 20120104
  Transmission Date: 20120608
  Serious: Yes (Death)
  Sender: FDA-Public Use
  Company Number: 1158750

PATIENT
  Age: 49 Year
  Sex: Female

DRUGS (3)
  1. SERTRALINE HYDROCHLORIDE [Suspect]
     Dosage: NOT REPORTED
  2. METOPROLOL TARTRATE [Suspect]
     Dosage: NOT REPORTED
  3. ETHANOL [Suspect]

REACTIONS (2)
  - COMPLETED SUICIDE [None]
  - POISONING [None]
